FAERS Safety Report 5239640-9 (Version None)
Quarter: 2007Q1

REPORT INFORMATION
  Report Type: 
  Country: None (occurrence: None)
  Receive Date: 20070216
  Receipt Date: 20070209
  Transmission Date: 20070707
  Serious: Yes (Hospitalization)
  Sender: FDA-Public Use
  Company Number: NO-GLAXOSMITHKLINE-B0458345A

PATIENT
  Sex: Female

DRUGS (30)
  1. SERETIDE [Suspect]
     Indication: ASTHMA
     Dosage: 4PUFF TWICE PER DAY
     Route: 055
  2. SINGULAIR [Concomitant]
     Dosage: 10MG PER DAY
  3. AIROMIR AUTOHALER [Concomitant]
  4. BRONKYL [Concomitant]
     Dosage: 200MG AS REQUIRED
  5. LOMUDAL [Concomitant]
     Dosage: 10ML FOUR TIMES PER DAY
  6. ACTIVELLE [Concomitant]
  7. FOSAMAX [Concomitant]
     Dosage: 70MG WEEKLY
     Route: 048
  8. PINEX [Concomitant]
     Dosage: 500MG AS REQUIRED
  9. OCULAC [Concomitant]
     Dosage: 4DROP AT NIGHT
     Route: 031
  10. FUCIDINE CAP [Concomitant]
     Route: 061
     Dates: start: 20060801, end: 20060801
  11. FLUTIVATE [Concomitant]
     Indication: ECZEMA
     Route: 061
     Dates: start: 20050701
  12. ANTIBIOTICS [Concomitant]
  13. ALPHA TOCOPHEROL [Concomitant]
  14. EVENING PRIMROSE OIL [Concomitant]
     Dosage: 2UD PER DAY
  15. WILD YAM [Concomitant]
     Dosage: 2UD PER DAY
  16. HERBAL MEDICINE [Concomitant]
  17. BIFIDOBACTERIUM LONGUM [Concomitant]
     Dosage: 2CAP PER DAY
  18. EXTRACT OF ENTEROCOCCUS FAECALIS [Concomitant]
     Dosage: 2CAP PER DAY
  19. SELEN [Concomitant]
     Dosage: 200MCG PER DAY
  20. ZINK [Concomitant]
     Dosage: 2TAB PER DAY
     Route: 048
  21. MULTI-VITAMIN [Concomitant]
     Dosage: 2CAP PER DAY
  22. ECHINACEA WITH VITAMIN C [Concomitant]
     Dosage: 2CAP PER DAY
     Dates: start: 20060101, end: 20060101
  23. NATURAL MEDICATION [Concomitant]
     Dosage: 5DROP TWICE PER DAY
     Route: 061
     Dates: start: 20060411, end: 20060622
  24. HOMEOPATHIC ANTIBACTERIAL MEDICATION [Concomitant]
     Dosage: 5DROP TWICE PER DAY
     Route: 061
     Dates: start: 20060411, end: 20060622
  25. MAGNESIUM SULFATE [Concomitant]
     Dosage: 1TSP AT NIGHT
     Dates: start: 20060411, end: 20061006
  26. NATURAL MEDICATION [Concomitant]
     Dosage: 2CUP PER DAY
     Dates: start: 20060411, end: 20061006
  27. HOMEOPATHIC ANTIBACTERIAL MEDICATION [Concomitant]
     Dosage: 5DROP TWICE PER DAY
     Route: 061
     Dates: start: 20060629, end: 20061006
  28. HOMEOPATHIC ANTIBACTERIAL MEDICATION [Concomitant]
     Dates: start: 20060629, end: 20061006
  29. HOMEOPATHIC ANTIBACTERIAL MEDICATION [Concomitant]
     Route: 061
     Dates: start: 20060818, end: 20061006
  30. AMARANTH [Concomitant]

REACTIONS (12)
  - ADRENAL CORTICAL INSUFFICIENCY [None]
  - ANXIETY [None]
  - ASTHENIA [None]
  - BLOOD CORTISOL DECREASED [None]
  - DRUG ABUSER [None]
  - FATIGUE [None]
  - HAEMATURIA [None]
  - HYPOTHALAMO-PITUITARY DISORDER [None]
  - PYREXIA [None]
  - RENAL FAILURE [None]
  - STRESS [None]
  - TENSION [None]
